FAERS Safety Report 5065637-8 (Version None)
Quarter: 2006Q3

REPORT INFORMATION
  Report Type: 
  Country: None (occurrence: None)
  Receive Date: 20060724
  Receipt Date: 20060111
  Transmission Date: 20061208
  Serious: Yes (Hospitalization)
  Sender: FDA-Public Use
  Company Number: 6019532

PATIENT
  Age: 53 Year
  Sex: Female

DRUGS (3)
  1. LEVOTHYROX 75 (75 MICROGRAM, TABLET) (LEVOTHROXINE SODIUM) [Suspect]
     Indication: HYPOTHYROIDISM
     Dosage: 75 MCG (75 MCG, 1 D); ORAL
     Route: 048
  2. INTRON A [Suspect]
     Indication: POLYCYTHAEMIA VERA
     Dosage: 1,2857 MI (3 MI, 3 IN 1 WK) ; SUBCUTANEOUS
     Route: 058
  3. ASPEGIC (250 MG, POWDER FOR ORAL SOLUTION) (ACETYLSALICYLIC ACID) [Suspect]
     Indication: ANTIPLATELET THERAPY
     Dosage: 250 MG (250 MG, 1 IN 1 D) ORAL
     Route: 048

REACTIONS (4)
  - ACUTE CORONARY SYNDROME [None]
  - MALAISE [None]
  - MYOCARDIAL INFARCTION [None]
  - VENTRICULAR FIBRILLATION [None]
